FAERS Safety Report 23229594 (Version 2)
Quarter: 2023Q4

REPORT INFORMATION
  Report Type: Report from Study
  Country: CA (occurrence: CA)
  Receive Date: 20231127
  Receipt Date: 20231229
  Transmission Date: 20240110
  Serious: Yes (Other)
  Sender: FDA-Public Use
  Company Number: CA-Korea IPSEN-2022-14277

PATIENT
  Age: 41 Year
  Sex: Male

DRUGS (2)
  1. LANREOTIDE ACETATE [Suspect]
     Active Substance: LANREOTIDE ACETATE
     Indication: Acromegaly
     Dosage: 60MG
     Route: 058
     Dates: start: 20200415, end: 2020
  2. LANREOTIDE ACETATE [Suspect]
     Active Substance: LANREOTIDE ACETATE
     Indication: Thyroid stimulating hormone-producing pituitary tumour

REACTIONS (3)
  - Hyperthyroidism [Not Recovered/Not Resolved]
  - Neoplasm progression [Unknown]
  - Paraganglion neoplasm [Unknown]

NARRATIVE: CASE EVENT DATE: 20220601
